FAERS Safety Report 13677760 (Version 1)
Quarter: 2017Q2

REPORT INFORMATION
  Report Type: Spontaneous
  Country: CH (occurrence: CH)
  Receive Date: 20170622
  Receipt Date: 20170622
  Transmission Date: 20170830
  Serious: Yes (Congenital Anomaly, Other)
  Sender: FDA-Public Use
  Company Number: CH-GLAXOSMITHKLINE-CH2017095749

PATIENT
  Age: 0 Year
  Sex: Female
  Weight: 3 kg

DRUGS (2)
  1. VALTREX [Suspect]
     Active Substance: VALACYCLOVIR HYDROCHLORIDE
     Indication: ANTIVIRAL PROPHYLAXIS
     Dosage: 250 MG, QD
     Route: 064
     Dates: start: 201703
  2. BRINTELLIX [Suspect]
     Active Substance: VORTIOXETINE HYDROBROMIDE
     Indication: DEPRESSION
     Dosage: 5 MG, QD
     Route: 064
     Dates: start: 201703

REACTIONS (4)
  - Bicuspid aortic valve [Not Recovered/Not Resolved]
  - Exposure during pregnancy [Unknown]
  - Aorta hypoplasia [Not Recovered/Not Resolved]
  - Persistent left superior vena cava [Not Recovered/Not Resolved]

NARRATIVE: CASE EVENT DATE: 201703
